FAERS Safety Report 5945850-5 (Version None)
Quarter: 2008Q4

REPORT INFORMATION
  Report Type: 
  Country: None (occurrence: None)
  Receive Date: 20081110
  Receipt Date: 20081008
  Transmission Date: 20090506
  Serious: No
  Sender: FDA-Public Use
  Company Number: US-BAYER-200831602NA

PATIENT
  Age: 24 Month
  Sex: Female

DRUGS (1)
  1. NEXAVAR [Suspect]
     Indication: ACCIDENTAL EXPOSURE
     Dates: start: 20080820

REACTIONS (1)
  - NO ADVERSE EVENT [None]
